FAERS Safety Report 18921446 (Version 1)
Quarter: 2021Q1

REPORT INFORMATION
  Report Type: Spontaneous
  Country: US (occurrence: US)
  Receive Date: 20210219
  Receipt Date: 20210219
  Transmission Date: 20210420
  Serious: Yes (Other)
  Sender: FDA-Public Use
  Company Number: None

PATIENT
  Age: 35 Year
  Sex: Female
  Weight: 97.52 kg

DRUGS (8)
  1. WELLBUTRIN [Concomitant]
     Active Substance: BUPROPION HYDROCHLORIDE
  2. BUSPIRONE [Concomitant]
     Active Substance: BUSPIRONE HYDROCHLORIDE
  3. FUROSEMIDE. [Concomitant]
     Active Substance: FUROSEMIDE
  4. KLONOPIN [Concomitant]
     Active Substance: CLONAZEPAM
  5. NAPROXEN. [Concomitant]
     Active Substance: NAPROXEN
  6. PROMETHAZINE [Concomitant]
     Active Substance: PROMETHAZINE HYDROCHLORIDE
  7. PARAGARD T 380A [Suspect]
     Active Substance: COPPER
     Dates: start: 20121130, end: 20201214
  8. TRAZODONE [Concomitant]
     Active Substance: TRAZODONE HYDROCHLORIDE

REACTIONS (3)
  - Device breakage [None]
  - Hysterectomy [None]
  - Embedded device [None]

NARRATIVE: CASE EVENT DATE: 20201214
